FAERS Safety Report 6075083-6 (Version None)
Quarter: 2009Q2

REPORT INFORMATION
  Report Type: 
  Country: None (occurrence: None)
  Receive Date: 20090212
  Receipt Date: 20090206
  Transmission Date: 20091009
  Serious: Yes (Hospitalization)
  Sender: FDA-Public Use
  Company Number: CH-WYE-G03070509

PATIENT
  Age: 44 Year
  Sex: Male

DRUGS (9)
  1. PIPERACILLIN SODIUM AND TAZOBACTAM SODIUM [Suspect]
     Indication: STREPTOCOCCAL SEPSIS
     Dosage: 4.5 G DURING 1 HOUR
     Route: 042
     Dates: start: 20090101, end: 20090101
  2. PIPERACILLIN SODIUM AND TAZOBACTAM SODIUM [Suspect]
     Indication: RETINAL VEIN THROMBOSIS
  3. PIPERACILLIN SODIUM AND TAZOBACTAM SODIUM [Suspect]
     Indication: JUGULAR VEIN THROMBOSIS
  4. PIPERACILLIN SODIUM AND TAZOBACTAM SODIUM [Suspect]
     Indication: CAVERNOUS SINUS THROMBOSIS
  5. NEXIUM [Concomitant]
     Route: 048
     Dates: start: 20090101, end: 20090110
  6. FLAGYL [Concomitant]
     Indication: STREPTOCOCCAL SEPSIS
     Route: 042
     Dates: start: 20090102, end: 20090105
  7. ROCEPHIN [Concomitant]
     Dates: start: 20090101, end: 20090110
  8. MEFENAMIC ACID [Suspect]
     Indication: PAIN
     Route: 048
     Dates: start: 20090101, end: 20090103
  9. VANCOMYCIN HCL [Concomitant]
     Indication: STREPTOCOCCAL SEPSIS
     Route: 042
     Dates: start: 20090101, end: 20090104

REACTIONS (2)
  - ACUTE GENERALISED EXANTHEMATOUS PUSTULOSIS [None]
  - RASH PAPULAR [None]
